FAERS Safety Report 5963534-4 (Version None)
Quarter: 2008Q4

REPORT INFORMATION
  Report Type: 
  Country: None (occurrence: None)
  Receive Date: 20081124
  Receipt Date: 20080118
  Transmission Date: 20090506
  Serious: No
  Sender: FDA-Public Use
  Company Number: US-BAYER-200711650BCC

PATIENT
  Age: 69 Year
  Sex: Female
  Weight: 104 kg

DRUGS (5)
  1. ALEVE (CAPLET) [Suspect]
     Indication: PAIN IN EXTREMITY
     Dosage: TOTAL DAILY DOSE: 440 MG  UNIT DOSE: 220 MG
     Route: 048
     Dates: start: 20070501
  2. METFORMIN HCL [Concomitant]
  3. AVANDIA [Concomitant]
  4. EQUATE MULTIVITAMIN [Concomitant]
  5. ACTOS [Concomitant]

REACTIONS (3)
  - DIARRHOEA [None]
  - MEDICATION RESIDUE [None]
  - PAIN IN EXTREMITY [None]
